FAERS Safety Report 6651886-1 (Version None)
Quarter: 2010Q1

REPORT INFORMATION
  Report Type: 
  Country: None (occurrence: None)
  Receive Date: 20100323
  Receipt Date: 20100308
  Transmission Date: 20100710
  Serious: Yes (Other)
  Sender: FDA-Public Use
  Company Number: AUR-APL-2010-00710

PATIENT
  Age: 49 Year
  Sex: Female

DRUGS (2)
  1. FLUOXETINE [Suspect]
     Indication: DEPRESSION
     Dosage: 20MG,
  2. TRIMETHOPRIM [Concomitant]

REACTIONS (6)
  - CYSTITIS [None]
  - DYSPHONIA [None]
  - INSOMNIA [None]
  - UPPER RESPIRATORY TRACT INFECTION [None]
  - URINARY TRACT INFECTION BACTERIAL [None]
  - VIRAL INFECTION [None]
